FAERS Safety Report 9719203 (Version 2)
Quarter: 2013Q4

REPORT INFORMATION
  Report Type: Spontaneous
  Country: US (occurrence: US)
  Receive Date: 20131127
  Receipt Date: 20131218
  Transmission Date: 20140711
  Serious: Yes (Hospitalization)
  Sender: FDA-Public Use
  Company Number: US-GILEAD-2013-0088262

PATIENT
  Age: 59 Year
  Sex: Male

DRUGS (5)
  1. RANEXA [Suspect]
     Indication: ANGINA PECTORIS
     Dosage: 500 MG, BID
     Route: 048
     Dates: start: 20130220, end: 201305
  2. RANEXA [Suspect]
     Dosage: 500 MG, BID (EVERY 12 HOURS)
     Dates: start: 20130513
  3. COREG [Concomitant]
  4. RAMIPRIL [Concomitant]
  5. PRAVACHOL [Concomitant]

REACTIONS (1)
  - Ventricular extrasystoles [Recovered/Resolved]
